FAERS Safety Report 5272486-4 (Version None)
Quarter: 2007Q1

REPORT INFORMATION
  Report Type: 
  Country: None (occurrence: None)
  Receive Date: 20070322
  Receipt Date: 20060202
  Transmission Date: 20070707
  Serious: No
  Sender: FDA-Public Use
  Company Number: US-BRISTOL-MYERS SQUIBB COMPANY-13270665

PATIENT
  Sex: Female
  Weight: 121 kg

DRUGS (6)
  1. KENALOG [Suspect]
     Indication: MUSCULOSKELETAL PAIN
     Route: 014
     Dates: start: 20051028, end: 20051201
  2. SINEQUAN [Concomitant]
  3. KLONOPIN [Concomitant]
  4. OXYCODONE HCL [Concomitant]
  5. VICODIN [Concomitant]
  6. IBUPROFEN [Concomitant]

REACTIONS (17)
  - ARTHRALGIA [None]
  - ASTHENIA [None]
  - BONE PAIN [None]
  - CHEST PAIN [None]
  - CYST [None]
  - DISTURBANCE IN ATTENTION [None]
  - FATIGUE [None]
  - HEADACHE [None]
  - INFLUENZA LIKE ILLNESS [None]
  - INJECTION SITE ATROPHY [None]
  - INJECTION SITE PAIN [None]
  - JOINT SWELLING [None]
  - MENSTRUATION IRREGULAR [None]
  - NECK PAIN [None]
  - NERVOUSNESS [None]
  - OEDEMA PERIPHERAL [None]
  - PAIN IN JAW [None]
